FAERS Safety Report 13166304 (Version 2)
Quarter: 2017Q1

REPORT INFORMATION
  Report Type: Spontaneous
  Country: RU (occurrence: RU)
  Receive Date: 20170131
  Receipt Date: 20170223
  Transmission Date: 20170428
  Serious: Yes (Hospitalization, Other)
  Sender: FDA-Public Use
  Company Number: RU-BRISTOL-MYERS SQUIBB COMPANY-BMS-2017-007035

PATIENT
  Sex: Female

DRUGS (1)
  1. ELIQUIS [Suspect]
     Active Substance: APIXABAN
     Indication: CEREBROVASCULAR ACCIDENT PROPHYLAXIS
     Dosage: 5 MG, BID
     Route: 065
     Dates: start: 201612, end: 20170118

REACTIONS (2)
  - Blindness [Unknown]
  - Haemorrhagic stroke [Recovered/Resolved]

NARRATIVE: CASE EVENT DATE: 20170117
